FAERS Safety Report 10401867 (Version 1)
Quarter: 2014Q3

REPORT INFORMATION
  Report Type: Report from Study
  Country: US (occurrence: US)
  Receive Date: 20140822
  Receipt Date: 20140822
  Transmission Date: 20150326
  Serious: No
  Sender: FDA-Public Use
  Company Number: US-009507513-1408USA006729

PATIENT
  Sex: Female
  Weight: 59.86 kg

DRUGS (1)
  1. IMPLANON [Suspect]
     Active Substance: ETONOGESTREL
     Dosage: UNK
     Route: 059
     Dates: start: 20140627, end: 20140811

REACTIONS (2)
  - Menstruation irregular [Unknown]
  - Acne [Unknown]

NARRATIVE: CASE EVENT DATE: 2014
